FAERS Safety Report 6810262-9 (Version None)
Quarter: 2010Q2

REPORT INFORMATION
  Report Type: 
  Country: None (occurrence: None)
  Receive Date: 20100630
  Receipt Date: 20100618
  Transmission Date: 20101027
  Serious: Yes (Hospitalization)
  Sender: FDA-Public Use
  Company Number: JP-EISAI INC.-E2090-01169-SPO-JP

PATIENT
  Age: 6 Year
  Sex: Male

DRUGS (4)
  1. EXCEGRAN [Suspect]
     Indication: EPILEPSY
     Dosage: 180 MG DAILY
     Route: 048
  2. DEPAKENE [Suspect]
     Indication: DRUG USE FOR UNKNOWN INDICATION
     Dosage: UNKNOWN
  3. DEPAKENE [Suspect]
     Dosage: UNKNOWN
  4. LANDSEN [Suspect]
     Indication: DRUG USE FOR UNKNOWN INDICATION
     Dosage: UNKNOWN

REACTIONS (1)
  - PLATELET COUNT DECREASED [None]
